FAERS Safety Report 18095074 (Version 2)
Quarter: 2020Q4

REPORT INFORMATION
  Report Type: Spontaneous
  Country: US (occurrence: US)
  Receive Date: 20200730
  Receipt Date: 20201030
  Transmission Date: 20210113
  Serious: No
  Sender: FDA-Public Use
  Company Number: US-AKCEA THERAPEUTICS-2020IS001230

PATIENT
  Age: 75 Year
  Sex: Male

DRUGS (12)
  1. AMIODARONE HYDROCHLORIDE. [Concomitant]
     Active Substance: AMIODARONE HYDROCHLORIDE
     Route: 065
  2. FLOMAX [Concomitant]
     Active Substance: TAMSULOSIN HYDROCHLORIDE
     Route: 065
  3. ISSD (INTEGRATED SYRINGE SAFETY DEVICE) [Suspect]
     Active Substance: DEVICE
  4. XARELTO [Concomitant]
     Active Substance: RIVAROXABAN
     Route: 065
  5. ASPIRIN. [Concomitant]
     Active Substance: ASPIRIN
     Route: 065
  6. TEGSEDI [Suspect]
     Active Substance: INOTERSEN SODIUM
     Indication: HEREDITARY NEUROPATHIC AMYLOIDOSIS
     Route: 058
     Dates: start: 20200419
  7. ALDACTONE [Concomitant]
     Active Substance: SPIRONOLACTONE
     Route: 065
  8. FIORINAL [Concomitant]
     Active Substance: ASPIRIN\BUTALBITAL\CAFFEINE
     Route: 065
  9. LASIX [Concomitant]
     Active Substance: FUROSEMIDE
     Route: 065
  10. TEA, GREEN [Concomitant]
     Active Substance: GREEN TEA LEAF
     Route: 065
  11. LISINOPRIL. [Concomitant]
     Active Substance: LISINOPRIL
     Route: 065
  12. TOPROL XL [Concomitant]
     Active Substance: METOPROLOL SUCCINATE
     Route: 065

REACTIONS (5)
  - Platelet count decreased [Unknown]
  - Blood creatinine increased [Not Recovered/Not Resolved]
  - Protein urine present [Unknown]
  - Urine protein/creatinine ratio abnormal [Not Recovered/Not Resolved]
  - Glomerular filtration rate decreased [Not Recovered/Not Resolved]

NARRATIVE: CASE EVENT DATE: 2020
